FAERS Safety Report 16305463 (Version 1)
Quarter: 2019Q2

REPORT INFORMATION
  Report Type: Spontaneous
  Country: GB (occurrence: GB)
  Receive Date: 20190513
  Receipt Date: 20190513
  Transmission Date: 20190711
  Serious: Yes (Other)
  Sender: FDA-Public Use
  Company Number: GB-BAYER-2019-094607

PATIENT
  Age: 30 Year
  Sex: Female
  Weight: 79.37 kg

DRUGS (1)
  1. KYLEENA [Suspect]
     Active Substance: LEVONORGESTREL
     Indication: CONTRACEPTION
     Dosage: 17.5 MCG/24HR, CONT
     Route: 015
     Dates: start: 20190115, end: 20190408

REACTIONS (4)
  - Menorrhagia [Recovered/Resolved]
  - Suicidal ideation [Recovered/Resolved]
  - Abdominal pain upper [Recovered/Resolved]
  - Depression [Recovered/Resolved]

NARRATIVE: CASE EVENT DATE: 20190201
